FAERS Safety Report 7994127-5 (Version None)
Quarter: 2011Q4

REPORT INFORMATION
  Report Type: 
  Country: None (occurrence: None)
  Receive Date: 20111123
  Receipt Date: 20110906
  Transmission Date: 20120403
  Serious: No
  Sender: FDA-Public Use
  Company Number: 337146

PATIENT
  Age: 59 Year
  Sex: Female

DRUGS (3)
  1. LANTUS [Concomitant]
  2. HUMALOG [Concomitant]
  3. VICTOZA [Suspect]
     Indication: TYPE 2 DIABETES MELLITUS
     Dosage: SUBCUTANEOUS
     Route: 058

REACTIONS (6)
  - BLOOD GLUCOSE INCREASED [None]
  - NAUSEA [None]
  - DYSPEPSIA [None]
  - MALAISE [None]
  - CONSTIPATION [None]
  - DECREASED APPETITE [None]
